FAERS Safety Report 4353113-7 (Version None)
Quarter: 2004Q2

REPORT INFORMATION
  Report Type: 
  Country: None (occurrence: None)
  Receive Date: 20040429
  Receipt Date: 20040416
  Transmission Date: 20050107
  Serious: Yes (Death)
  Sender: FDA-Public Use
  Company Number: 2003AP03221

PATIENT
  Age: 77 Year
  Sex: Female

DRUGS (13)
  1. IRESSA [Suspect]
     Indication: LUNG ADENOCARCINOMA
     Dosage: 250 MG DAILY PO
     Route: 048
     Dates: start: 20030728, end: 20030910
  2. IRESSA [Suspect]
     Indication: NON-SMALL CELL LUNG CANCER
     Dosage: 250 MG DAILY PO
     Route: 048
     Dates: start: 20030728, end: 20030910
  3. NORVASC [Concomitant]
  4. BLOPRESS [Concomitant]
  5. LIPITOR [Concomitant]
  6. ZANTAC [Concomitant]
  7. DASEN [Concomitant]
  8. MUCODYNE [Concomitant]
  9. LENDORM [Concomitant]
  10. OMEPRAZOLE [Concomitant]
  11. DOGMATYL [Concomitant]
  12. NAUZELIN [Concomitant]
  13. RADIATION THERAPY [Concomitant]

REACTIONS (2)
  - CONDITION AGGRAVATED [None]
  - RADIATION PNEUMONITIS [None]
